FAERS Safety Report 12797286 (Version 3)
Quarter: 2017Q1

REPORT INFORMATION
  Report Type: Spontaneous
  Country: JP (occurrence: JP)
  Receive Date: 20160929
  Receipt Date: 20170216
  Transmission Date: 20170428
  Serious: Yes (Death, Life-Threatening, Disabling)
  Sender: FDA-Public Use
  Company Number: JP-ACTELION-A-CH2016-142901

PATIENT
  Age: 67 Year
  Sex: Female

DRUGS (10)
  1. AMBROXOL [Concomitant]
     Active Substance: AMBROXOL
  2. ADOAIR [Concomitant]
     Active Substance: FLUTICASONE PROPIONATE\SALMETEROL XINAFOATE
  3. OPSUMIT [Suspect]
     Active Substance: MACITENTAN
     Indication: PULMONARY ARTERIAL HYPERTENSION
     Dosage: 10 MG, OD
     Route: 048
     Dates: start: 20160704, end: 20160922
  4. CARBOCISTEIN [Concomitant]
     Active Substance: CARBOCYSTEINE
  5. SPIRIVA [Concomitant]
     Active Substance: TIOTROPIUM BROMIDE MONOHYDRATE
  6. BAKTAR [Concomitant]
     Active Substance: SULFAMETHOXAZOLE\TRIMETHOPRIM
  7. PREDNISOLON [Concomitant]
     Active Substance: PREDNISOLONE
  8. LASIX [Concomitant]
     Active Substance: FUROSEMIDE
  9. CLARITHROMYCIN. [Concomitant]
     Active Substance: CLARITHROMYCIN
  10. OXYGEN. [Concomitant]
     Active Substance: OXYGEN

REACTIONS (7)
  - Activities of daily living impaired [Unknown]
  - Dysphagia [Not Recovered/Not Resolved]
  - Sepsis [Not Recovered/Not Resolved]
  - Pleural effusion [Not Recovered/Not Resolved]
  - Chronic obstructive pulmonary disease [Fatal]
  - Disseminated intravascular coagulation [Not Recovered/Not Resolved]
  - Pneumonia bacterial [Not Recovered/Not Resolved]

NARRATIVE: CASE EVENT DATE: 20160912
